FAERS Safety Report 21179606 (Version 1)
Quarter: 2022Q3

REPORT INFORMATION
  Report Type: Report from Study
  Country: US (occurrence: None)
  Receive Date: 20220805
  Receipt Date: 20220805
  Transmission Date: 20221026
  Serious: Yes (Hospitalization)
  Sender: FDA-Public Use
  Company Number: US-Eisai Medical Research-EC-2022-118170

PATIENT
  Age: 51 Year
  Sex: Female

DRUGS (1)
  1. LENVIMA [Suspect]
     Active Substance: LENVATINIB
     Indication: Endometrial cancer
     Route: 048
     Dates: end: 20220715

REACTIONS (8)
  - Abdominal pain [Recovering/Resolving]
  - Headache [Unknown]
  - Vaginal haemorrhage [Unknown]
  - Somnolence [Unknown]
  - Pyrexia [Unknown]
  - Urinary tract infection [Unknown]
  - Dry mouth [Unknown]
  - Malaise [Unknown]

NARRATIVE: CASE EVENT DATE: 20220101
